FAERS Safety Report 21422126 (Version 2)
Quarter: 2022Q4

REPORT INFORMATION
  Report Type: Spontaneous
  Country: US (occurrence: US)
  Receive Date: 20221007
  Receipt Date: 20221014
  Transmission Date: 20230113
  Serious: No
  Sender: FDA-Public Use
  Company Number: US-TORRENT-00012028

PATIENT
  Sex: Male
  Weight: 70 kg

DRUGS (1)
  1. TADALAFIL [Suspect]
     Active Substance: TADALAFIL
     Indication: Erectile dysfunction
     Dosage: ONE TABLET - ONCE A DAY
     Route: 065
     Dates: start: 20220923, end: 20220924

REACTIONS (1)
  - Drug ineffective [Unknown]
